FAERS Safety Report 25076580 (Version 1)
Quarter: 2025Q1

REPORT INFORMATION
  Report Type: Spontaneous
  Country: US (occurrence: US)
  Receive Date: 20250313
  Receipt Date: 20250313
  Transmission Date: 20250409
  Serious: Yes (Other)
  Sender: MERCK SHARP & DOHME LLC
  Company Number: US-009507513-2260335

PATIENT
  Sex: Female

DRUGS (3)
  1. EMEND [Suspect]
     Active Substance: APREPITANT
     Indication: Nausea
     Route: 048
     Dates: start: 202411, end: 2025
  2. EMEND [Suspect]
     Active Substance: APREPITANT
     Indication: Vomiting
  3. EMEND [Suspect]
     Active Substance: APREPITANT

REACTIONS (9)
  - Haematemesis [Unknown]
  - Vomiting [Unknown]
  - Dysphagia [Unknown]
  - Gastrointestinal tube insertion [Unknown]
  - Impaired gastric emptying [Unknown]
  - Irritable bowel syndrome [Unknown]
  - Nausea [Unknown]
  - Off label use [Unknown]
  - Product availability issue [Unknown]

NARRATIVE: CASE EVENT DATE: 20241101
